APPROVED DRUG PRODUCT: METAPROTERENOL SULFATE
Active Ingredient: METAPROTERENOL SULFATE
Strength: 10MG/5ML
Dosage Form/Route: SYRUP;ORAL
Application: A073034 | Product #001
Applicant: G AND W LABORATORIES INC
Approved: Aug 30, 1991 | RLD: No | RS: No | Type: DISCN